FAERS Safety Report 23379309 (Version 1)
Quarter: 2024Q1

REPORT INFORMATION
  Report Type: Spontaneous
  Country: IT (occurrence: IT)
  Receive Date: 20240108
  Receipt Date: 20240108
  Transmission Date: 20240409
  Serious: Yes (Death)
  Sender: FDA-Public Use
  Company Number: IT-TEVA-VS-3140151

PATIENT
  Age: 57 Year

DRUGS (1)
  1. DILTIAZEM [Suspect]
     Active Substance: DILTIAZEM
     Indication: Completed suicide
     Dosage: EIGHT EMPTY BLISTER UNITS, SUSTAINED RELEASE
     Route: 065

REACTIONS (7)
  - Intentional overdose [Fatal]
  - Myocardial fibrosis [Fatal]
  - Unresponsive to stimuli [Fatal]
  - Completed suicide [Fatal]
  - Toxicity to various agents [Fatal]
  - Brain oedema [Fatal]
  - Pulmonary oedema [Fatal]
